FAERS Safety Report 21194535 (Version 1)
Quarter: 2022Q3

REPORT INFORMATION
  Report Type: Spontaneous
  Country: HK (occurrence: HK)
  Receive Date: 20220810
  Receipt Date: 20220810
  Transmission Date: 20221027
  Serious: Yes (Other)
  Sender: FDA-Public Use
  Company Number: HK-MYLANLABS-2022M1084901

PATIENT
  Age: 65 Year
  Sex: Female

DRUGS (4)
  1. OLANZAPINE [Suspect]
     Active Substance: OLANZAPINE
     Indication: Psychotic disorder due to a general medical condition
     Dosage: 20 MILLIGRAM, QD, EVERY NIGHT
     Route: 065
  2. QUETIAPINE [Suspect]
     Active Substance: QUETIAPINE
     Indication: Psychotic disorder due to a general medical condition
     Dosage: 300 MILLIGRAM, QD (DOSE WAS TITRATED UP TO 300 MG EVERY NIGHT)
     Route: 065
  3. AMISULPRIDE [Suspect]
     Active Substance: AMISULPRIDE
     Indication: Psychotic disorder due to a general medical condition
     Dosage: UNK
     Route: 065
  4. VALPROATE SODIUM [Suspect]
     Active Substance: VALPROATE SODIUM
     Indication: Psychotic disorder due to a general medical condition
     Dosage: UNK
     Route: 065

REACTIONS (1)
  - Treatment failure [Unknown]
